FAERS Safety Report 10356919 (Version 3)
Quarter: 2014Q3

REPORT INFORMATION
  Report Type: Report from Study
  Country: CA (occurrence: CA)
  Receive Date: 20140801
  Receipt Date: 20140812
  Transmission Date: 20150326
  Serious: Yes (Hospitalization)
  Sender: FDA-Public Use
  Company Number: CA-JNJFOC-20140614889

PATIENT
  Age: 24 Year
  Sex: Female
  Weight: 43.2 kg

DRUGS (10)
  1. PANTOLOC [Concomitant]
     Active Substance: PANTOPRAZOLE SODIUM
     Route: 042
  2. SUCRALFATE. [Concomitant]
     Active Substance: SUCRALFATE
     Route: 065
  3. HEPARIN [Concomitant]
     Active Substance: HEPARIN SODIUM
     Route: 058
  4. GRAVOL [Concomitant]
     Active Substance: DIMENHYDRINATE
     Dosage: AS NECESSARY
     Route: 065
  5. DOMPERIDONE [Concomitant]
     Active Substance: DOMPERIDONE
     Route: 065
  6. ENTOCORT [Concomitant]
     Active Substance: BUDESONIDE
     Route: 048
  7. ZOFRAN [Concomitant]
     Active Substance: ONDANSETRON HYDROCHLORIDE
     Dosage: AS NECESSARY
     Route: 065
  8. ALESSE 28 [Concomitant]
     Active Substance: ETHINYL ESTRADIOL\LEVONORGESTREL
     Route: 048
  9. DILAUDID [Concomitant]
     Active Substance: HYDROMORPHONE HYDROCHLORIDE
     Dosage: AS NECESSARY
     Route: 065
  10. REMICADE [Suspect]
     Active Substance: INFLIXIMAB
     Indication: CROHN^S DISEASE
     Route: 042
     Dates: start: 20140221

REACTIONS (3)
  - Obstruction [Unknown]
  - Haematemesis [Unknown]
  - Weight decreased [Unknown]

NARRATIVE: CASE EVENT DATE: 20140611
